FAERS Safety Report 25751471 (Version 1)
Quarter: 2025Q3

REPORT INFORMATION
  Report Type: Spontaneous
  Country: US (occurrence: US)
  Receive Date: 20250902
  Receipt Date: 20250902
  Transmission Date: 20251021
  Serious: No
  Sender: FRESENIUS KABI
  Company Number: US-FreseniusKabi-FK202511724

PATIENT
  Sex: Female

DRUGS (1)
  1. DILAUDID [Suspect]
     Active Substance: HYDROMORPHONE HYDROCHLORIDE
     Indication: Product used for unknown indication

REACTIONS (2)
  - Dyspnoea [Unknown]
  - Rash [Unknown]
